FAERS Safety Report 6223099-9 (Version None)
Quarter: 2009Q2

REPORT INFORMATION
  Report Type: 
  Country: None (occurrence: None)
  Receive Date: 20090609
  Receipt Date: 20090526
  Transmission Date: 20091009
  Serious: Yes (Hospitalization)
  Sender: FDA-Public Use
  Company Number: 1000006608

PATIENT
  Age: 96 Year
  Sex: Female

DRUGS (11)
  1. MEMANTINE HCL [Suspect]
     Dosage: 2 DOSAGE FORMS (2 DOSAGE FORMS, 1 IN 1D),ORAL
     Route: 048
  2. FUROSEMIDE [Suspect]
     Dosage: 20 MG (20 MG, 1 IN 1 D)
  3. VASTAREL (35 MILLIGRAM) [Suspect]
     Dosage: 2 DOSAGE FORMS (2 DOSAGE FORMS, 1 IN 1 D), ORAL
     Route: 048
  4. ATARAX [Suspect]
     Dosage: 1 DOSAGE FORMS (0.5 DOSAGE FORMS, 2 IN 1 D), ORAL
     Route: 048
  5. IXPRIM [Suspect]
     Dosage: 4 DOSAGE FORMS (1 DOSAGE FORMS, 4 IN 1 D)
  6. DIFFU K [Concomitant]
  7. OGASTORO [Concomitant]
  8. TARDYFERON B9 [Concomitant]
  9. VITAMIN B-12 [Concomitant]
  10. FIXICAL VITAMINE D3 [Concomitant]
  11. SOLUPRED [Concomitant]

REACTIONS (4)
  - ABNORMAL BEHAVIOUR [None]
  - CONDITION AGGRAVATED [None]
  - DRUG INTERACTION [None]
  - FALL [None]
